FAERS Safety Report 5342640-1 (Version None)
Quarter: 2007Q2

REPORT INFORMATION
  Report Type: 
  Country: None (occurrence: None)
  Receive Date: 20070601
  Receipt Date: 20070417
  Transmission Date: 20071010
  Serious: Yes (Hospitalization)
  Sender: FDA-Public Use
  Company Number: FR-BOEHRINGER INGELHEIM PHARMACEUTICALS, INC.-2006-BP-13830YA

PATIENT
  Age: 87 Year
  Sex: Male

DRUGS (11)
  1. OMIX L.P. [Suspect]
     Indication: BENIGN PROSTATIC HYPERPLASIA
     Route: 048
     Dates: end: 20060909
  2. BURINEX [Suspect]
     Indication: HYPERTENSION
     Route: 048
     Dates: end: 20060818
  3. BURINEX [Suspect]
     Route: 048
     Dates: start: 20060819, end: 20060828
  4. FOZITEC [Suspect]
     Indication: HYPERTENSION
     Route: 048
     Dates: start: 20060101, end: 20060819
  5. FOZITEC [Suspect]
     Route: 048
     Dates: start: 20060819, end: 20060831
  6. FOZITEC [Suspect]
     Route: 048
     Dates: start: 20060905, end: 20060926
  7. FOSINOPRIL SODIUM AND HYDROCHLOROTHIAZIDE [Suspect]
     Indication: HYPERTENSION
     Dates: start: 20060831, end: 20060905
  8. FLECAINIDE ACETATE [Concomitant]
     Indication: ARRHYTHMIA
     Route: 048
  9. PERMIXON (SERENOA REPENS) [Concomitant]
     Indication: BENIGN PROSTATIC HYPERPLASIA
     Route: 048
  10. AGYRAX [Concomitant]
     Indication: VERTIGO
  11. LASIX [Concomitant]
     Indication: HYPERTENSION
     Dates: start: 20060829, end: 20060831

REACTIONS (2)
  - BLADDER DISORDER [None]
  - HYPONATRAEMIA [None]
